FAERS Safety Report 4442085-2 (Version None)
Quarter: 2004Q3

REPORT INFORMATION
  Report Type: 
  Country: None (occurrence: None)
  Receive Date: 20040903
  Receipt Date: 20040603
  Transmission Date: 20050211
  Serious: Yes (Hospitalization)
  Sender: FDA-Public Use
  Company Number: 2004UW11122

PATIENT
  Age: 64 Year
  Sex: Female
  Weight: 75.2971 kg

DRUGS (4)
  1. CRESTOR [Suspect]
     Dosage: 10 MG PO
     Route: 048
     Dates: end: 20040501
  2. ASPIRIN [Concomitant]
  3. PROTONIX [Concomitant]
  4. UNSPECIFIED HORMONE PATCH [Concomitant]

REACTIONS (1)
  - PANCREATITIS ACUTE [None]
